FAERS Safety Report 12381230 (Version 1)
Quarter: 2016Q2

REPORT INFORMATION
  Report Type: Spontaneous
  Country: US (occurrence: None)
  Receive Date: 20160517
  Receipt Date: 20160517
  Transmission Date: 20160815
  Serious: Yes (Life-Threatening)
  Sender: FDA-Public Use
  Company Number: None

PATIENT
  Age: 26 Year
  Sex: Male

DRUGS (4)
  1. KEPPRA [Suspect]
     Active Substance: LEVETIRACETAM
  2. LAMICTAL 100MG (GENERIC) [Suspect]
     Active Substance: LAMOTRIGINE
  3. LAMICTAL 25MG (GENERIC) [Suspect]
     Active Substance: LAMOTRIGINE
  4. DEPAKOTE [Suspect]
     Active Substance: DIVALPROEX SODIUM

REACTIONS (4)
  - Cognitive disorder [None]
  - Seizure [None]
  - Lethargy [None]
  - Emotional disorder [None]
